FAERS Safety Report 4644556-2 (Version None)
Quarter: 2005Q2

REPORT INFORMATION
  Report Type: 
  Country: None (occurrence: None)
  Receive Date: 20050331
  Receipt Date: 20050119
  Transmission Date: 20051028
  Serious: No
  Sender: FDA-Public Use
  Company Number: 04P-163-0271793-00

PATIENT
  Age: 69 Year
  Sex: Female
  Weight: 68.0396 kg

DRUGS (10)
  1. HUMIRA [Suspect]
     Indication: RHEUMATOID ARTHRITIS
     Dosage: 40 MG, 1 IN 2 WK, SUBCUTANEOUS;  40 MG, 1 IN 2 WK, SUBCUTANEOUS
     Route: 058
     Dates: start: 20040601, end: 20040801
  2. HUMIRA [Suspect]
     Indication: RHEUMATOID ARTHRITIS
     Dosage: 40 MG, 1 IN 2 WK, SUBCUTANEOUS;  40 MG, 1 IN 2 WK, SUBCUTANEOUS
     Route: 058
     Dates: start: 20041201
  3. GABAPENTIN [Concomitant]
  4. METHOTREXATE [Concomitant]
  5. PREDNISONE [Concomitant]
  6. ATORVASTATIN CALCIUM [Concomitant]
  7. FENOFIBRATE [Concomitant]
  8. HYDROXYCHLOROQUINE PHOSPHATE [Concomitant]
  9. CELECOXIB [Concomitant]
  10. FOLIC ACID [Concomitant]

REACTIONS (3)
  - DRUG INEFFECTIVE [None]
  - MUSCULAR WEAKNESS [None]
  - RHEUMATOID ARTHRITIS [None]
